FAERS Safety Report 9931755 (Version 1)
Quarter: 2014Q1

REPORT INFORMATION
  Report Type: Spontaneous
  Country: FR (occurrence: FR)
  Receive Date: 20140228
  Receipt Date: 20140228
  Transmission Date: 20141002
  Serious: Yes (Hospitalization)
  Sender: FDA-Public Use
  Company Number: FR-JNJFOC-20140212273

PATIENT
  Age: 76 Year
  Sex: Female

DRUGS (9)
  1. EPITOMAX [Suspect]
     Indication: EPILEPSY
     Route: 048
  2. DI-HYDAN [Suspect]
     Indication: EPILEPSY
     Dosage: 100 MG TABLET
     Route: 048
     Dates: start: 20131030, end: 20131231
  3. TEGRETOL [Suspect]
     Indication: EPILEPSY
     Route: 065
  4. ISOPTINE LP [Concomitant]
     Route: 048
  5. MEDIATENSYL [Concomitant]
     Route: 048
  6. KARDEGIC [Concomitant]
     Route: 048
  7. INEGY [Concomitant]
     Dosage: 10MG/40MG TABLET ORAL
     Route: 048
  8. ZOPICLONE [Concomitant]
     Route: 065
  9. UVEDOSE [Concomitant]
     Route: 048

REACTIONS (10)
  - Dyskinesia [Recovered/Resolved]
  - Confusional state [Recovered/Resolved]
  - Logorrhoea [Recovered/Resolved]
  - Dizziness [Recovered/Resolved]
  - Ataxia [Recovered/Resolved]
  - Anticonvulsant drug level increased [Recovered/Resolved]
  - Perseveration [Recovered/Resolved]
  - Anxiety [Recovered/Resolved]
  - Malaise [Unknown]
  - Nausea [Unknown]
